FAERS Safety Report 8314018-X (Version None)
Quarter: 2012Q2

REPORT INFORMATION
  Report Type: 
  Country: None (occurrence: None)
  Receive Date: 20120426
  Receipt Date: 20110808
  Transmission Date: 20120825
  Serious: Yes (Other)
  Sender: FDA-Public Use
  Company Number: US-TEVA-US023433

PATIENT
  Sex: Female

DRUGS (8)
  1. PROVIGIL [Suspect]
     Indication: FATIGUE
     Route: 048
  2. BACLOFEN [Concomitant]
  3. NEURONTIN [Concomitant]
  4. REBIF [Suspect]
     Dosage: THREE TIMES A WEEK
     Route: 058
     Dates: start: 20071107, end: 20071111
  5. REBIF [Suspect]
     Dosage: THREE TIMES A WEEK
     Route: 058
     Dates: start: 20071024, end: 20071106
  6. TRAMADOL HCL [Suspect]
     Indication: PAIN
     Route: 065
  7. NAPROXEN [Concomitant]
  8. REBIF [Suspect]
     Indication: MULTIPLE SCLEROSIS
     Dosage: THREE TIMES A WEEK
     Route: 058
     Dates: start: 20071010, end: 20071023

REACTIONS (6)
  - BLOOD PRESSURE INCREASED [None]
  - URINARY HESITATION [None]
  - PALPITATIONS [None]
  - HEART RATE INCREASED [None]
  - DYSPNOEA [None]
  - DIZZINESS [None]
